FAERS Safety Report 25881975 (Version 1)
Quarter: 2025Q4

REPORT INFORMATION
  Report Type: Spontaneous
  Country: EU (occurrence: EU)
  Receive Date: 20251005
  Receipt Date: 20251005
  Transmission Date: 20260118
  Serious: Yes (Hospitalization, Congenital Anomaly, Other)
  Sender: CELLTRION
  Company Number: EU-EMB-M202402207-1

PATIENT

DRUGS (1)
  1. INFLIXIMAB [Suspect]
     Active Substance: INFLIXIMAB
     Indication: Ankylosing spondylitis
     Dosage: 1X/2 WK (ADDITIONAL INFO: ; ROUTE:064 [TRANSPLACENTAL] EVERY SECOND WEEK)
     Route: 064
     Dates: start: 202306, end: 202402

REACTIONS (4)
  - Temperature regulation disorder [Recovered/Resolved]
  - Small for dates baby [Recovered/Resolved]
  - Kidney duplex [Unknown]
  - Foetal exposure during pregnancy [Unknown]

NARRATIVE: CASE EVENT DATE: 20240201
